FAERS Safety Report 4311691-8 (Version None)
Quarter: 2004Q1

REPORT INFORMATION
  Report Type: 
  Country: None (occurrence: None)
  Receive Date: 20040303
  Receipt Date: 20040303
  Transmission Date: 20041129
  Serious: Yes (Other)
  Sender: FDA-Public Use
  Company Number: None

PATIENT
  Sex: Female

DRUGS (1)
  1. ARIDIA-PAMIDRONATE [Suspect]
     Indication: OSTEOPOROSIS
     Dosage: 30 MG
     Dates: start: 20040205

REACTIONS (5)
  - ASTHENIA [None]
  - CHILLS [None]
  - MUSCLE CONTRACTIONS INVOLUNTARY [None]
  - MYALGIA [None]
  - PYREXIA [None]
